FAERS Safety Report 14966872 (Version 1)
Quarter: 2018Q2

REPORT INFORMATION
  Report Type: Spontaneous
  Country: CZ (occurrence: CZ)
  Receive Date: 20180604
  Receipt Date: 20180604
  Transmission Date: 20180711
  Serious: No
  Sender: FDA-Public Use
  Company Number: CZ-CHEPLA-C20180066

PATIENT
  Age: 54 Year
  Sex: Male
  Weight: 105 kg

DRUGS (4)
  1. METFORMIN [Concomitant]
     Active Substance: METFORMIN HYDROCHLORIDE
     Dosage: 12 PER HOUR
  2. ISAME (IRBESARTAN) [Concomitant]
     Dosage: 2 DF, 1 PER DAY
  3. SORTIS (ATORVASTATIN CALCIUM) [Concomitant]
     Active Substance: ATORVASTATIN
     Dosage: 1 PER DAY
  4. ORLISTAT. [Suspect]
     Active Substance: ORLISTAT
     Indication: OBESITY
     Route: 048

REACTIONS (1)
  - Weight fluctuation [Unknown]
